FAERS Safety Report 9252157 (Version 1)
Quarter: 2013Q2

REPORT INFORMATION
  Report Type: Spontaneous
  Country: CH (occurrence: CH)
  Receive Date: 20130424
  Receipt Date: 20130424
  Transmission Date: 20140414
  Serious: Yes (Hospitalization)
  Sender: FDA-Public Use
  Company Number: PHHY2013CH039105

PATIENT
  Age: 80 Year
  Sex: Female

DRUGS (4)
  1. CO-AMOXI-MEPHA [Suspect]
     Indication: PYREXIA
     Route: 041
     Dates: start: 20120923, end: 20120925
  2. GARAMYCIN [Suspect]
     Indication: PYREXIA
     Route: 041
     Dates: start: 20120923, end: 20120925
  3. ROCEPHIN [Suspect]
     Indication: PYREXIA
     Dosage: 2 G, QD
     Route: 041
     Dates: start: 20120925
  4. LAMOTRIGINE [Concomitant]
     Indication: EPILEPSY
     Dosage: 150 MG, QD
     Route: 048
     Dates: start: 2010

REACTIONS (1)
  - Complex partial seizures [Recovered/Resolved]
